FAERS Safety Report 25259816 (Version 4)
Quarter: 2025Q3

REPORT INFORMATION
  Report Type: Report from Study
  Country: EU (occurrence: EU)
  Receive Date: 20250501
  Receipt Date: 20250911
  Transmission Date: 20251020
  Serious: Yes (Death, Hospitalization)
  Sender: PFIZER
  Company Number: EU-PFM-2025-02092

PATIENT
  Sex: Female
  Weight: 68 kg

DRUGS (11)
  1. BRAFTOVI [Suspect]
     Active Substance: ENCORAFENIB
     Indication: Colorectal cancer
     Dosage: 300 MG/DAY
     Route: 048
     Dates: start: 20250417, end: 20250422
  2. CETUXIMAB [Suspect]
     Active Substance: CETUXIMAB
     Indication: Colorectal cancer
     Dosage: 400 MG/M2, WEEKLY, (LIQUID DILUTION)
     Route: 042
     Dates: start: 20250417, end: 20250417
  3. SPIRONOLACTONE [Concomitant]
     Active Substance: SPIRONOLACTONE
     Indication: Arrhythmia supraventricular
     Dosage: 25 MG, DAILY
     Route: 048
  4. APIXABAN [Concomitant]
     Active Substance: APIXABAN
     Indication: Arrhythmia supraventricular
     Dosage: 5 MG, BID (2/DAY)
     Route: 048
  5. PANTOZOL [Concomitant]
     Active Substance: PANTOPRAZOLE SODIUM
     Indication: Prophylaxis
     Dosage: 40 MG, DAILY
     Route: 048
  6. ETORICOXIB [Concomitant]
     Active Substance: ETORICOXIB
     Indication: Pain
     Route: 048
  7. MIRTAZAPIN BETA [Concomitant]
     Indication: Mental disorder
     Dosage: 7.5 MG DAILY (15 MG/-30 MG/-45 MG)
     Route: 048
  8. LEVOTHYROXINE [Concomitant]
     Active Substance: LEVOTHYROXINE
     Indication: Hypothyroidism
     Dosage: 25 UG, DAILY
     Route: 048
  9. BISOPROLOL RATIOPHARM [Concomitant]
     Indication: Essential hypertension
     Dosage: 5 MG, DAILY
     Route: 048
  10. HYDROMORPHONHYDROCHLORID BETA [Concomitant]
     Indication: Pain
     Dosage: 8 MG, BID (2/DAY) (2 MG/-4 MG/-8 MG/-16)
     Route: 048
  11. PREGABALIN [Concomitant]
     Active Substance: PREGABALIN
     Indication: Pain
     Dosage: 50 MG, DAILY
     Route: 048
     Dates: start: 202411

REACTIONS (1)
  - General physical health deterioration [Fatal]

NARRATIVE: CASE EVENT DATE: 20250422
